FAERS Safety Report 18558981 (Version 1)
Quarter: 2020Q4

REPORT INFORMATION
  Report Type: Spontaneous
  Country: US (occurrence: US)
  Receive Date: 20201126
  Receipt Date: 20201126
  Transmission Date: 20210114
  Serious: Yes (Other)
  Sender: FDA-Public Use
  Company Number: None

PATIENT
  Age: 32 Year
  Sex: Female
  Weight: 110.25 kg

DRUGS (3)
  1. CLARITIN [Concomitant]
     Active Substance: LORATADINE
  2. ZYRTEC [Concomitant]
     Active Substance: CETIRIZINE HYDROCHLORIDE
  3. NEURONTIN [Suspect]
     Active Substance: GABAPENTIN
     Indication: SCIATICA
     Dosage: ?          QUANTITY:1 CAPSULE(S);?
     Route: 048
     Dates: start: 20200830, end: 20200915

REACTIONS (7)
  - Suicidal ideation [None]
  - Peripheral swelling [None]
  - Autoscopy [None]
  - Mood swings [None]
  - Oedema peripheral [None]
  - Memory impairment [None]
  - Insomnia [None]

NARRATIVE: CASE EVENT DATE: 20200905
